FAERS Safety Report 9114306 (Version 5)
Quarter: 2014Q2

REPORT INFORMATION
  Report Type: Spontaneous
  Country: US (occurrence: US)
  Receive Date: 20130208
  Receipt Date: 20140630
  Transmission Date: 20141212
  Serious: Yes (Hospitalization, Other)
  Sender: FDA-Public Use
  Company Number: US-009507513-1302USA002879

PATIENT
  Sex: Female
  Weight: 77.98 kg

DRUGS (1)
  1. NUVARING [Suspect]
     Indication: CONTRACEPTION
     Dosage: UNK
     Route: 067
     Dates: start: 20070329, end: 20070704

REACTIONS (27)
  - Vena cava filter insertion [Unknown]
  - Stent placement [Unknown]
  - Thrombophlebitis [Recovered/Resolved with Sequelae]
  - Back pain [Unknown]
  - Pain in extremity [Unknown]
  - Skin disorder [Unknown]
  - Epidural injection [Unknown]
  - Constipation [Unknown]
  - Dyspepsia [Unknown]
  - Sleep disorder [Unknown]
  - Musculoskeletal discomfort [Unknown]
  - Uterine leiomyoma [Unknown]
  - Antiphospholipid antibodies [Unknown]
  - Intervertebral disc protrusion [Unknown]
  - Chest discomfort [Unknown]
  - Hemiparesis [Unknown]
  - Device difficult to use [Unknown]
  - Sciatica [Unknown]
  - Neck pain [Unknown]
  - Fistula [Not Recovered/Not Resolved]
  - Pulmonary embolism [Unknown]
  - Deep vein thrombosis [Recovering/Resolving]
  - Musculoskeletal pain [Unknown]
  - Arthralgia [Unknown]
  - Musculoskeletal pain [Unknown]
  - Pain in extremity [Unknown]
  - Pain in extremity [Unknown]
